FAERS Safety Report 8431673 (Version 6)
Quarter: 2018Q3

REPORT INFORMATION
  Report Type: Spontaneous
  Country: US (occurrence: US)
  Receive Date: 20120228
  Receipt Date: 20180726
  Transmission Date: 20181010
  Serious: Yes (Hospitalization, Disabling, Other)
  Sender: FDA-Public Use
  Company Number: US-009507513-1202USA03877

PATIENT
  Sex: Male
  Weight: 53.07 kg

DRUGS (15)
  1. CORTICOSTEROIDS (UNSPECIFIED) [Concomitant]
     Active Substance: UNSPECIFIED INGREDIENT
     Dosage: 1951?PRESENT
  2. CALCIUM (UNSPECIFIED) [Concomitant]
     Active Substance: CALCIUM
     Dosage: TO PRESENT
     Dates: start: 1995
  3. FOSAMAX [Suspect]
     Active Substance: ALENDRONATE SODIUM
     Indication: OSTEOPOROSIS
     Dosage: 10 MG, QD
     Route: 048
     Dates: start: 20000104, end: 200801
  4. ALENDRONATE SODIUM. [Suspect]
     Active Substance: ALENDRONATE SODIUM
     Indication: OSTEOPOROSIS
     Dosage: 70 MG, QW
     Route: 048
     Dates: start: 20080303, end: 20100628
  5. ALENDRONATE SODIUM. [Suspect]
     Active Substance: ALENDRONATE SODIUM
     Indication: OSTEOPOROSIS
     Dosage: 70 MG, QW
     Dates: start: 200803, end: 201006
  6. CELEBREX [Concomitant]
     Active Substance: CELECOXIB
     Indication: ARTHRITIS
     Dosage: TO PRESENT
     Dates: start: 2005
  7. FOSAMAX [Suspect]
     Active Substance: ALENDRONATE SODIUM
     Dosage: UNK
     Dates: start: 20110307
  8. CORTISONE [Concomitant]
     Active Substance: CORTISONE\HYDROCORTISONE
     Indication: ARTHRITIS
     Dosage: 1950?PRESENT
  9. METICORTEN [Concomitant]
     Active Substance: PREDNISONE
     Indication: ARTHRITIS
     Dosage: 1950?PRESENT
  10. FOSAMAX [Suspect]
     Active Substance: ALENDRONATE SODIUM
     Dosage: 70 MG, QW
     Route: 048
     Dates: start: 20020404, end: 20080102
  11. ALENDRONATE SODIUM. [Suspect]
     Active Substance: ALENDRONATE SODIUM
     Indication: OSTEOPENIA
  12. FOSAMAX [Suspect]
     Active Substance: ALENDRONATE SODIUM
     Route: 048
  13. CYTOTEC [Concomitant]
     Active Substance: MISOPROSTOL
  14. VITAMIN D [Concomitant]
     Active Substance: CHOLECALCIFEROL
     Dosage: TO PRESENT
     Dates: start: 1995
  15. DIOVAN [Concomitant]
     Active Substance: VALSARTAN
     Indication: HYPERTENSION

REACTIONS (41)
  - Epistaxis [Not Recovered/Not Resolved]
  - Mass [Unknown]
  - Gastrointestinal haemorrhage [Unknown]
  - Oedema peripheral [Recovering/Resolving]
  - Peripheral venous disease [Unknown]
  - Pyrexia [Recovered/Resolved]
  - Ankle fracture [Unknown]
  - Nerve injury [Unknown]
  - Prostate cancer [Unknown]
  - Cholelithiasis [Unknown]
  - Haemorrhagic anaemia [Recovering/Resolving]
  - Blood urea increased [Unknown]
  - Mitral valve incompetence [Unknown]
  - Femur fracture [Unknown]
  - Colitis [Unknown]
  - Gait disturbance [Unknown]
  - Hypothyroidism [Unknown]
  - Diarrhoea [Unknown]
  - Myocardial infarction [Unknown]
  - Aortic dilatation [Unknown]
  - Aortic valve incompetence [Unknown]
  - Arthropathy [Unknown]
  - Arthralgia [Not Recovered/Not Resolved]
  - Calcium deficiency [Unknown]
  - Fracture [Unknown]
  - Nephrolithiasis [Unknown]
  - Skin ulcer [Recovering/Resolving]
  - Osteoarthritis [Unknown]
  - Arteriosclerosis [Unknown]
  - Haemorrhoids [Not Recovered/Not Resolved]
  - Infection [Unknown]
  - Skin abrasion [Unknown]
  - Juvenile idiopathic arthritis [Unknown]
  - Oedema peripheral [Unknown]
  - Cellulitis [Recovering/Resolving]
  - Ulcer [Not Recovered/Not Resolved]
  - Cardiac disorder [Unknown]
  - Cardiac murmur [Unknown]
  - Inguinal hernia [Unknown]
  - Skin ulcer [Recovering/Resolving]
  - Confusional state [Recovered/Resolved]

NARRATIVE: CASE EVENT DATE: 2000
